FAERS Safety Report 18795310 (Version 1)
Quarter: 2021Q1

REPORT INFORMATION
  Report Type: Spontaneous
  Country: AT (occurrence: AT)
  Receive Date: 20210127
  Receipt Date: 20210127
  Transmission Date: 20210419
  Serious: Yes (Hospitalization)
  Sender: FDA-Public Use
  Company Number: AT-DSJP-DSE-2021-102050

PATIENT
  Age: 85 Year
  Sex: Male

DRUGS (1)
  1. LIXIANA [Suspect]
     Active Substance: EDOXABAN TOSYLATE
     Indication: ATRIAL FIBRILLATION
     Dosage: 30 MG, QD
     Dates: start: 202004, end: 202101

REACTIONS (2)
  - Ischaemic cerebral infarction [Not Recovered/Not Resolved]
  - Microembolism [Not Recovered/Not Resolved]

NARRATIVE: CASE EVENT DATE: 20210107
